FAERS Safety Report 21656597 (Version 1)
Quarter: 2022Q4

REPORT INFORMATION
  Report Type: Spontaneous
  Country: AU (occurrence: None)
  Receive Date: 20221129
  Receipt Date: 20221129
  Transmission Date: 20230112
  Serious: Yes (Hospitalization, Other)
  Sender: FDA-Public Use
  Company Number: AU-Merck Healthcare KGaA-9368425

PATIENT
  Age: 72 Year
  Sex: Male

DRUGS (8)
  1. METFORMIN [Suspect]
     Active Substance: METFORMIN HYDROCHLORIDE
     Indication: Type 2 diabetes mellitus
     Route: 048
     Dates: start: 201509
  2. METFORMIN [Suspect]
     Active Substance: METFORMIN HYDROCHLORIDE
     Route: 048
  3. INSPRA [Suspect]
     Active Substance: EPLERENONE
     Indication: Cardiac failure congestive
     Route: 048
  4. METHOTREXATE [Suspect]
     Active Substance: METHOTREXATE
     Indication: Dermatitis
     Route: 048
  5. NEBIVOLOL [Suspect]
     Active Substance: NEBIVOLOL
     Indication: Cardiac failure congestive
     Route: 048
  6. WARFARIN [Suspect]
     Active Substance: WARFARIN
     Indication: Mitral valve incompetence
     Route: 048
  7. ENTRESTO [Suspect]
     Active Substance: SACUBITRIL\VALSARTAN
     Indication: Cardiac failure congestive
  8. INDAPAMIDE HEMIHYDRATE [Concomitant]
     Active Substance: INDAPAMIDE HEMIHYDRATE
     Indication: Product used for unknown indication

REACTIONS (14)
  - Coronary artery disease [Unknown]
  - Acute kidney injury [Unknown]
  - Cellulitis [Unknown]
  - Deep vein thrombosis [Unknown]
  - Mitral valve incompetence [Unknown]
  - Fatigue [Unknown]
  - Hyponatraemia [Unknown]
  - Hypotension [Unknown]
  - International normalised ratio increased [Unknown]
  - Lethargy [Unknown]
  - Malaise [Unknown]
  - Oedema peripheral [Unknown]
  - Dermatitis [Unknown]
  - Rash [Unknown]

NARRATIVE: CASE EVENT DATE: 20151110
